FAERS Safety Report 8241270-1 (Version None)
Quarter: 2012Q1

REPORT INFORMATION
  Report Type: 
  Country: None (occurrence: None)
  Receive Date: 20120328
  Receipt Date: 20120323
  Transmission Date: 20120608
  Serious: Yes (Other)
  Sender: FDA-Public Use
  Company Number: AU-BAYER-2012-029855

PATIENT
  Age: 50 Year
  Sex: Male

DRUGS (14)
  1. VENLAFAXINE [Suspect]
     Dosage: DAILY DOSE 300 MG
  2. VITAMIN MIXTURE CONTAINING SEROTONIN [Suspect]
  3. VALPROATE SODIUM [Suspect]
     Dosage: DAILY DOSE 1000 MG
  4. FLUOXETINE [Suspect]
  5. VALPROATE SODIUM [Suspect]
     Dosage: DAILY DOSE 800 MG
  6. VALPROATE SODIUM [Suspect]
     Dosage: UNK
  7. DIAZEPAM [Suspect]
  8. ZOLPIDEM [Suspect]
     Indication: EMOTIONAL DISTRESS
     Dosage: UNK
  9. ZOLPIDEM [Suspect]
     Dosage: 10 MG, UNK
  10. CIPROFLOXACIN HCL [Suspect]
  11. ZOPLICONE [Suspect]
     Indication: EMOTIONAL DISTRESS
     Dosage: UNK
  12. VITAMIN TAB [Concomitant]
  13. AMITRIPTYLINE HCL [Suspect]
  14. METOCLOPRAMIDE [Suspect]

REACTIONS (3)
  - HOMICIDE [None]
  - SOMNAMBULISM [None]
  - AKATHISIA [None]
